FAERS Safety Report 10163395 (Version 2)
Quarter: 2014Q2

REPORT INFORMATION
  Report Type: Report from Study
  Country: NL (occurrence: NL)
  Receive Date: 20140509
  Receipt Date: 20140526
  Transmission Date: 20141212
  Serious: Yes (Other)
  Sender: FDA-Public Use
  Company Number: PHHY2014NL056356

PATIENT
  Age: 81 Year
  Sex: Female

DRUGS (6)
  1. ACLASTA [Suspect]
     Indication: OSTEOPOROSIS
     Dosage: 5 MG, 1 X PER 52 WEEK
     Route: 042
  2. CALCIUM + VITAMIN D [Concomitant]
     Dosage: 1 DF, UNK
  3. TRIAMTEREEN/EPITIZIDE [Concomitant]
     Dosage: 1 DF, UNK
  4. PARACETAMOL + CODEINE [Concomitant]
     Dosage: 3 DF, UNK
  5. PREGABALIN [Concomitant]
     Dosage: 1 DF, UNK
  6. FLUTICASONE [Concomitant]
     Dosage: 3 DF, UNK

REACTIONS (2)
  - Plasma cell myeloma [Unknown]
  - Back pain [Unknown]
